FAERS Safety Report 7728790-0 (Version None)
Quarter: 2011Q3

REPORT INFORMATION
  Report Type: 
  Country: None (occurrence: None)
  Receive Date: 20110831
  Receipt Date: 20110816
  Transmission Date: 20111222
  Serious: Yes (Death, Life-Threatening, Hospitalization)
  Sender: FDA-Public Use
  Company Number: 2011MA012021

PATIENT
  Age: 39 Year
  Sex: Male

DRUGS (1)
  1. PROPRANOLOL HCL [Suspect]
     Indication: ATRIAL FIBRILLATION
     Dosage: 5 MG 0.16 MG/MIN, IV
     Route: 042

REACTIONS (8)
  - SUPRAVENTRICULAR TACHYCARDIA [None]
  - DYSPNOEA [None]
  - CARDIO-RESPIRATORY ARREST [None]
  - CARDIOGENIC SHOCK [None]
  - MULTI-ORGAN FAILURE [None]
  - ANURIA [None]
  - COMA [None]
  - EJECTION FRACTION DECREASED [None]
